FAERS Safety Report 14619615 (Version 1)
Quarter: 2018Q1

REPORT INFORMATION
  Report Type: Spontaneous
  Country: FR (occurrence: FR)
  Receive Date: 20180309
  Receipt Date: 20180309
  Transmission Date: 20180509
  Serious: Yes (Other)
  Sender: FDA-Public Use
  Company Number: FR-TEVA-2018-FR-865057

PATIENT
  Age: 75 Year
  Sex: Female

DRUGS (6)
  1. FURADANTINE TEVA 50 MG [Interacting]
     Active Substance: NITROFURANTOIN
     Dosage: 2 DOSAGE FORMS DAILY;
     Dates: start: 20180219, end: 20180220
  2. FURADANTINE TEVA 50 MG [Suspect]
     Active Substance: NITROFURANTOIN
     Indication: URINARY TRACT INFECTION
     Dosage: 1 DOSAGE FORMS DAILY; TAKEN IN THE EVENING
     Dates: start: 20180215, end: 20180215
  3. FURADANTINE TEVA 50 MG [Interacting]
     Active Substance: NITROFURANTOIN
     Dosage: 4  DAILY; TWO TABLETS TAKEN IN THE MORNING AND IN THE EVENING
     Dates: start: 20180216, end: 20180216
  4. TRAMADOL. [Concomitant]
     Active Substance: TRAMADOL
  5. FURADANTINE TEVA 50 MG [Interacting]
     Active Substance: NITROFURANTOIN
     Dosage: 3 DOSAGE FORMS DAILY;
     Dates: start: 20180217, end: 20180218
  6. CELEBREX [Interacting]
     Active Substance: CELECOXIB
     Indication: URINARY TRACT INFECTION
     Route: 065

REACTIONS (3)
  - Abdominal pain [Recovered/Resolved]
  - Drug interaction [Unknown]
  - Haematochezia [Not Recovered/Not Resolved]

NARRATIVE: CASE EVENT DATE: 201802
